FAERS Safety Report 25852183 (Version 2)
Quarter: 2025Q4

REPORT INFORMATION
  Report Type: Spontaneous
  Country: US (occurrence: US)
  Receive Date: 20250926
  Receipt Date: 20251003
  Transmission Date: 20260118
  Serious: No
  Sender: EISAI
  Company Number: US-Eisai-EC-2025-197150

PATIENT
  Age: 73 Year
  Sex: Female
  Weight: 57.2 kg

DRUGS (8)
  1. LECANEMAB [Suspect]
     Active Substance: LECANEMAB
     Indication: Dementia Alzheimer^s type
     Route: 042
     Dates: start: 20231214
  2. DONEPEZIL [Concomitant]
     Active Substance: DONEPEZIL
     Indication: Product used for unknown indication
     Dosage: DOSE AND FREQUENCY UNKNOWN
  3. MEMANTINE [Concomitant]
     Active Substance: MEMANTINE
     Indication: Product used for unknown indication
     Dosage: DOSE AND FREQUENCY UNKNOWN
  4. MIRTAZAPINE [Concomitant]
     Active Substance: MIRTAZAPINE
     Indication: Product used for unknown indication
     Dosage: DOSE AND FREQUENCY UNKNOWN
  5. OLANZAPINE [Concomitant]
     Active Substance: OLANZAPINE
     Indication: Product used for unknown indication
     Dosage: DOSE AND FREQUENCY UNKNOWN
  6. ONDANSETRON [Concomitant]
     Active Substance: ONDANSETRON
     Indication: Product used for unknown indication
     Dosage: DOSE AND FREQUENCY UNKNOWN
  7. PRAVASTATIN [Concomitant]
     Active Substance: PRAVASTATIN
     Indication: Product used for unknown indication
     Dosage: DOSE AND FREQUENCY UNKNOWN
  8. VENLAFAXINE [Concomitant]
     Active Substance: VENLAFAXINE HYDROCHLORIDE
     Indication: Product used for unknown indication
     Dosage: DOSE AND FREQUENCY UNKNOWN

REACTIONS (3)
  - Amyloid related imaging abnormality-oedema/effusion [Recovered/Resolved]
  - Amyloid related imaging abnormality-microhaemorrhages and haemosiderin deposits [Not Recovered/Not Resolved]
  - Superficial siderosis of central nervous system [Not Recovered/Not Resolved]

NARRATIVE: CASE EVENT DATE: 20240131
